FAERS Safety Report 24029856 (Version 3)
Quarter: 2024Q3

REPORT INFORMATION
  Report Type: Report from Study
  Country: JP (occurrence: JP)
  Receive Date: 20240628
  Receipt Date: 20240720
  Transmission Date: 20241017
  Serious: Yes (Other)
  Sender: JOHNSON AND JOHNSON
  Company Number: JP-JNJFOC-20240675739

PATIENT

DRUGS (1)
  1. SIMPONI [Suspect]
     Active Substance: GOLIMUMAB
     Indication: Rheumatoid arthritis
     Dosage: DOSE UNKNOWN
     Route: 058

REACTIONS (6)
  - Pneumonia [Unknown]
  - Atypical mycobacterial infection [Unknown]
  - Cerebral infarction [Unknown]
  - Lung neoplasm malignant [Unknown]
  - Pleurisy [Unknown]
  - Drug ineffective [Unknown]
